FAERS Safety Report 17607890 (Version 1)
Quarter: 2020Q1

REPORT INFORMATION
  Report Type: Spontaneous
  Country: US (occurrence: US)
  Receive Date: 20200331
  Receipt Date: 20200331
  Transmission Date: 20200409
  Serious: Yes (Disabling, Other)
  Sender: FDA-Public Use
  Company Number: US-TEVA-2020-US-1213979

PATIENT
  Age: 65 Year
  Sex: Male

DRUGS (3)
  1. TOBRAMYCIN. [Suspect]
     Active Substance: TOBRAMYCIN
     Indication: MYCOBACTERIUM CHELONAE INFECTION
     Dosage: 300 MILLIGRAM DAILY;
     Route: 042
     Dates: start: 201705
  2. CLINDAMYCIN. [Concomitant]
     Active Substance: CLINDAMYCIN
     Indication: CELLULITIS
     Route: 065
     Dates: start: 201704
  3. CLARITHROMYCIN. [Concomitant]
     Active Substance: CLARITHROMYCIN
     Dosage: 1000 MILLIGRAM DAILY;
     Route: 048

REACTIONS (5)
  - Tinnitus [Unknown]
  - Vestibular disorder [Recovering/Resolving]
  - Balance disorder [Recovering/Resolving]
  - Ototoxicity [Unknown]
  - Deafness neurosensory [Unknown]
